FAERS Safety Report 14058141 (Version 2)
Quarter: 2017Q4

REPORT INFORMATION
  Report Type: Report from Study
  Country: US (occurrence: US)
  Receive Date: 20171006
  Receipt Date: 20171124
  Transmission Date: 20180321
  Serious: Yes (Death, Hospitalization)
  Sender: FDA-Public Use
  Company Number: US-ACTELION-A-NJ2017-159893

PATIENT
  Age: 58 Year
  Sex: Female

DRUGS (24)
  1. OPSUMIT [Suspect]
     Active Substance: MACITENTAN
     Dosage: UNK
     Route: 048
     Dates: end: 20170925
  2. ADCIRCA [Suspect]
     Active Substance: TADALAFIL
     Indication: PRODUCT USED FOR UNKNOWN INDICATION
     Dosage: 2 UNK, UNK TABLETS
     Route: 065
  3. LETAIRIS [Suspect]
     Active Substance: AMBRISENTAN
     Indication: PRODUCT USED FOR UNKNOWN INDICATION
     Route: 065
  4. INSULIN REGULAR [Concomitant]
     Active Substance: INSULIN NOS
  5. CETIRIZINE [Concomitant]
     Active Substance: CETIRIZINE HYDROCHLORIDE
  6. METFORMIN [Concomitant]
     Active Substance: METFORMIN HYDROCHLORIDE
  7. GLYBURIDE. [Concomitant]
     Active Substance: GLYBURIDE
  8. FAMOTIDINE. [Concomitant]
     Active Substance: FAMOTIDINE
  9. HEPARIN [Concomitant]
     Active Substance: HEPARIN SODIUM
  10. ASPIRIN 81 [Concomitant]
     Active Substance: ASPIRIN
  11. LOVASTATIN. [Concomitant]
     Active Substance: LOVASTATIN
  12. ADCIRCA [Suspect]
     Active Substance: TADALAFIL
     Dosage: 1 UNK, UNK TABLETS
     Route: 065
  13. LEVOFLOXACIN. [Concomitant]
     Active Substance: LEVOFLOXACIN
  14. NOREPINEPHRINE. [Concomitant]
     Active Substance: NOREPINEPHRINE
  15. MONTELUKAST [Concomitant]
     Active Substance: MONTELUKAST SODIUM
  16. PROAIR HFA [Concomitant]
     Active Substance: ALBUTEROL SULFATE
  17. METOPROLOL. [Concomitant]
     Active Substance: METOPROLOL
  18. OPSUMIT [Suspect]
     Active Substance: MACITENTAN
     Indication: PULMONARY ARTERIAL HYPERTENSION
     Dosage: 10 MG, UNK
     Route: 048
     Dates: start: 20170727, end: 20170820
  19. OPSUMIT [Suspect]
     Active Substance: MACITENTAN
     Dosage: UNK
     Route: 048
     Dates: start: 20170827, end: 20170922
  20. ONDANSETRON [Concomitant]
     Active Substance: ONDANSETRON
  21. HYDRALAZINE [Concomitant]
     Active Substance: HYDRALAZINE HYDROCHLORIDE
  22. OXYGEN. [Concomitant]
     Active Substance: OXYGEN
  23. OPSUMIT [Suspect]
     Active Substance: MACITENTAN
     Dosage: UNK
     Route: 048
     Dates: start: 20170521
  24. GLUCAGON. [Concomitant]
     Active Substance: GLUCAGON

REACTIONS (16)
  - Respiratory arrest [Fatal]
  - Hypoxic-ischaemic encephalopathy [Fatal]
  - Brain oedema [Fatal]
  - Mental status changes [Fatal]
  - Rib fracture [Unknown]
  - Arthralgia [Recovering/Resolving]
  - Upper respiratory tract infection [Unknown]
  - Respiratory distress [Fatal]
  - Pleural effusion [Unknown]
  - Dizziness [Recovering/Resolving]
  - Hypoxia [Fatal]
  - Cardiomegaly [Unknown]
  - Pulmonary oedema [Unknown]
  - Cardiac arrest [Fatal]
  - Pneumonia [Unknown]
  - Procedural complication [Unknown]

NARRATIVE: CASE EVENT DATE: 20170728
